FAERS Safety Report 7989359-6 (Version None)
Quarter: 2011Q4

REPORT INFORMATION
  Report Type: 
  Country: None (occurrence: None)
  Receive Date: 20111216
  Receipt Date: 20111216
  Transmission Date: 20120403
  Serious: Yes (Hospitalization)
  Sender: FDA-Public Use
  Company Number: None

PATIENT
  Sex: Female

DRUGS (2)
  1. LIFTING EYE CREME 15ML [Suspect]
     Indication: SKIN DISORDER
     Dosage: TWICE DAILY
     Dates: start: 20111025
  2. ANTIOXIDANT DAY CREAM SPF 20 LOZ [Suspect]
     Indication: SKIN DISORDER
     Dosage: ONCE DAILY
     Dates: start: 20111025

REACTIONS (4)
  - URTICARIA [None]
  - FEELING HOT [None]
  - ERYTHEMA [None]
  - ASTHMA [None]
